FAERS Safety Report 5201714-6 (Version None)
Quarter: 2007Q1

REPORT INFORMATION
  Report Type: 
  Country: None (occurrence: None)
  Receive Date: 20070104
  Receipt Date: 20061219
  Transmission Date: 20070707
  Serious: Yes (Death, Other)
  Sender: FDA-Public Use
  Company Number: 2006EU003354

PATIENT
  Age: 44 Year
  Sex: Female

DRUGS (1)
  1. PROGRAF [Suspect]
     Indication: LIVER TRANSPLANT
     Dosage: 3 MG, BID

REACTIONS (7)
  - GENERAL PHYSICAL HEALTH DETERIORATION [None]
  - HAEMOGLOBIN DECREASED [None]
  - HEPATIC NECROSIS [None]
  - HERPES SIMPLEX [None]
  - LIVER TRANSPLANT REJECTION [None]
  - MULTI-ORGAN FAILURE [None]
  - WHITE BLOOD CELL COUNT INCREASED [None]
